FAERS Safety Report 20122965 (Version 2)
Quarter: 2022Q2

REPORT INFORMATION
  Report Type: Spontaneous
  Country: CA (occurrence: CA)
  Receive Date: 20211129
  Receipt Date: 20220405
  Transmission Date: 20220720
  Serious: Yes (Other)
  Sender: FDA-Public Use
  Company Number: CA-SA-SAC20211124000052

PATIENT
  Age: 68 Year
  Sex: Female

DRUGS (5)
  1. LEFLUNOMIDE [Suspect]
     Active Substance: LEFLUNOMIDE
     Indication: Product used for unknown indication
     Dosage: 20 MG
     Route: 048
     Dates: start: 20150115, end: 20201116
  2. HYDROXYCHLOROQUINE [Concomitant]
     Active Substance: HYDROXYCHLOROQUINE
     Indication: Product used for unknown indication
     Dosage: 40 MG, QD
     Route: 065
     Dates: start: 20170710, end: 20170925
  3. METHOTREXATE [Concomitant]
     Active Substance: METHOTREXATE
     Indication: Product used for unknown indication
     Route: 048
  4. NAPROXEN [Concomitant]
     Active Substance: NAPROXEN
     Indication: Product used for unknown indication
     Route: 048
  5. SULFASALAZINE [Concomitant]
     Active Substance: SULFASALAZINE
     Indication: Product used for unknown indication
     Dosage: 2 G, QD
     Route: 065
     Dates: start: 20190828, end: 20190924

REACTIONS (8)
  - Arthralgia [Unknown]
  - Chills [Unknown]
  - Gastric disorder [Unknown]
  - Pain [Unknown]
  - Pain in extremity [Unknown]
  - Cough [Unknown]
  - Headache [Unknown]
  - C-reactive protein abnormal [Unknown]
